FAERS Safety Report 24014639 (Version 2)
Quarter: 2024Q3

REPORT INFORMATION
  Report Type: Spontaneous
  Country: FR (occurrence: FR)
  Receive Date: 20240626
  Receipt Date: 20240715
  Transmission Date: 20241017
  Serious: No
  Sender: TEVA
  Company Number: FR-TEVA-VS-3212601

PATIENT
  Age: 51 Year
  Sex: Male

DRUGS (1)
  1. ALBUTEROL SULFATE [Suspect]
     Active Substance: ALBUTEROL SULFATE
     Indication: Dyspnoea
     Dosage: 100 MICROGRAMS PER DOSE SUSPENSION FOR INHALATION IN PRESSURIZED BOTTLE AT THE DOSAGE OF FOUR INT...
     Route: 055
     Dates: start: 20240511, end: 20240511

REACTIONS (3)
  - Asthma [Unknown]
  - Drug ineffective [Unknown]
  - Device difficult to use [Unknown]

NARRATIVE: CASE EVENT DATE: 20240615
